FAERS Safety Report 17555750 (Version 2)
Quarter: 2020Q2

REPORT INFORMATION
  Report Type: Spontaneous
  Country: FR (occurrence: FR)
  Receive Date: 20200318
  Receipt Date: 20200526
  Transmission Date: 20200713
  Serious: Yes (Other)
  Sender: FDA-Public Use
  Company Number: FR-BAYER-2020-043250

PATIENT
  Age: 75 Year
  Sex: Male

DRUGS (5)
  1. STIVARGA [Suspect]
     Active Substance: REGORAFENIB
     Indication: NEOPLASM MALIGNANT
     Dosage: 160 MG, QD
     Dates: start: 20200417
  2. NEXAVAR [Suspect]
     Active Substance: SORAFENIB
     Dosage: 800 MG, QD
     Dates: start: 201705, end: 201805
  3. STIVARGA [Suspect]
     Active Substance: REGORAFENIB
     Indication: NEOPLASM MALIGNANT
     Dosage: UNK
     Dates: start: 201906, end: 2019
  4. STIVARGA [Suspect]
     Active Substance: REGORAFENIB
     Indication: NEOPLASM MALIGNANT
     Dosage: 80 MG PER DAY
     Dates: start: 20200308
  5. LENVATINIB [Concomitant]
     Active Substance: LENVATINIB
     Dosage: UNK
     Dates: start: 202003

REACTIONS (9)
  - Drug intolerance [None]
  - Palmar-plantar erythrodysaesthesia syndrome [None]
  - General physical health deterioration [None]
  - Decreased appetite [None]
  - Diarrhoea [None]
  - Disease progression [None]
  - Asthenia [None]
  - Off label use [None]
  - Gastrointestinal disorder [None]

NARRATIVE: CASE EVENT DATE: 2018
